FAERS Safety Report 18027843 (Version 1)
Quarter: 2020Q3

REPORT INFORMATION
  Report Type: Report from Study
  Country: PK (occurrence: PK)
  Receive Date: 20200715
  Receipt Date: 20200715
  Transmission Date: 20201103
  Serious: Yes (Death)
  Sender: FDA-Public Use
  Company Number: NVSC2020PK198013

PATIENT
  Age: 64 Year
  Sex: Male
  Weight: 60 kg

DRUGS (1)
  1. AFINITOR [Suspect]
     Active Substance: EVEROLIMUS
     Indication: RENAL CELL CARCINOMA
     Dosage: 10 MG (1/2 OD)
     Route: 048
     Dates: start: 20190723, end: 20200220

REACTIONS (1)
  - Death [Fatal]

NARRATIVE: CASE EVENT DATE: 20200220
